FAERS Safety Report 8317548-X (Version None)
Quarter: 2012Q2

REPORT INFORMATION
  Report Type: 
  Country: None (occurrence: None)
  Receive Date: 20120427
  Receipt Date: 20120416
  Transmission Date: 20120825
  Serious: Yes (Hospitalization)
  Sender: FDA-Public Use
  Company Number: PHHY2012ES035102

PATIENT
  Age: 77 Year
  Sex: Female

DRUGS (1)
  1. TEGRETOL [Suspect]
     Indication: EPILEPSY
     Dosage: UNK
     Route: 048
     Dates: start: 20100101, end: 20100323

REACTIONS (6)
  - DECREASED APPETITE [None]
  - ANTICONVULSANT DRUG LEVEL INCREASED [None]
  - GAIT DISTURBANCE [None]
  - TOXICITY TO VARIOUS AGENTS [None]
  - ASTHENIA [None]
  - HEADACHE [None]
